FAERS Safety Report 5220001-3 (Version None)
Quarter: 2007Q1

REPORT INFORMATION
  Report Type: 
  Country: None (occurrence: None)
  Receive Date: 20070124
  Receipt Date: 20070124
  Transmission Date: 20070707
  Serious: Yes (Other)
  Sender: FDA-Public Use
  Company Number: None

PATIENT
  Age: 52 Year
  Sex: Male
  Weight: 149.2 kg

DRUGS (16)
  1. FORMOTEROL FUMARATE [Suspect]
  2. LISINOPRIL [Concomitant]
  3. ISOSORBIDE MONONITRATE [Concomitant]
  4. COLCHICINE [Concomitant]
  5. TRIAMTERENE [Concomitant]
  6. OXYCODONE / ACETAMINOPHEN [Concomitant]
  7. METHYLPRED ACET [Concomitant]
  8. NITROGLYCERIN [Concomitant]
  9. ACETAMINOPHEN [Concomitant]
  10. FOLIC ACID [Concomitant]
  11. OMEPRAZOLE [Concomitant]
  12. ALBUTEROL / IPRATROP [Concomitant]
  13. CARVEDILOL [Concomitant]
  14. FLUNISOLIDE [Concomitant]
  15. SIMVASTATIN [Concomitant]
  16. GEMFIBROZIL [Concomitant]

REACTIONS (1)
  - RASH [None]
